FAERS Safety Report 24286937 (Version 1)
Quarter: 2024Q3

REPORT INFORMATION
  Report Type: Spontaneous
  Country: CN (occurrence: CN)
  Receive Date: 20240905
  Receipt Date: 20240905
  Transmission Date: 20241017
  Serious: Yes (Hospitalization)
  Sender: PURDUE
  Company Number: CN-NAPPMUNDI-GBR-2024-0119307

PATIENT
  Age: 74 Year
  Sex: Female
  Weight: 43 kg

DRUGS (6)
  1. OXYCODONE HYDROCHLORIDE [Suspect]
     Active Substance: OXYCODONE HYDROCHLORIDE
     Indication: Abdominal pain upper
     Dosage: 10 MILLIGRAM, Q12H
     Route: 048
     Dates: start: 20240807, end: 20240810
  2. OXYCODONE HYDROCHLORIDE [Suspect]
     Active Substance: OXYCODONE HYDROCHLORIDE
     Indication: Back pain
  3. OXYCODONE HYDROCHLORIDE [Suspect]
     Active Substance: OXYCODONE HYDROCHLORIDE
     Indication: Cancer pain
  4. MORPHINE HYDROCHLORIDE [Concomitant]
     Active Substance: MORPHINE HYDROCHLORIDE
     Indication: Abdominal pain upper
     Dosage: 40 MILLIGRAM, DAILY
     Route: 048
     Dates: start: 20240807, end: 20240807
  5. MORPHINE HYDROCHLORIDE [Concomitant]
     Active Substance: MORPHINE HYDROCHLORIDE
     Indication: Back pain
  6. MORPHINE HYDROCHLORIDE [Concomitant]
     Active Substance: MORPHINE HYDROCHLORIDE
     Indication: Breakthrough pain

REACTIONS (2)
  - Urinary retention [Recovering/Resolving]
  - Urethritis [Recovering/Resolving]

NARRATIVE: CASE EVENT DATE: 20240809
